FAERS Safety Report 7364730-4 (Version None)
Quarter: 2011Q1

REPORT INFORMATION
  Report Type: 
  Country: None (occurrence: None)
  Receive Date: 20110321
  Receipt Date: 20110308
  Transmission Date: 20110831
  Serious: Yes (Other)
  Sender: FDA-Public Use
  Company Number: PHHY2011JP20083

PATIENT
  Age: 77 Year
  Sex: Female

DRUGS (2)
  1. ETIDRONATE DISODIUM [Suspect]
     Indication: OSTEOPOROSIS
     Dosage: 4.8 G, FOR EVERY 12 WEEKS
     Dates: start: 19990101, end: 20011001
  2. ALENDRONATE [Suspect]
     Dosage: 5 MG, QD

REACTIONS (2)
  - FALL [None]
  - FEMUR FRACTURE [None]
